FAERS Safety Report 22124964 (Version 1)
Quarter: 2023Q1

REPORT INFORMATION
  Report Type: Spontaneous
  Country: US (occurrence: None)
  Receive Date: 20230321
  Receipt Date: 20230321
  Transmission Date: 20230417
  Serious: Yes (Hospitalization)
  Sender: FDA-Public Use
  Company Number: None

PATIENT
  Age: 35 Year
  Sex: Male

DRUGS (6)
  1. HUMIRA [Suspect]
     Active Substance: ADALIMUMAB
     Indication: Colitis ulcerative
     Route: 058
     Dates: start: 20230120
  2. ABILIFY [Concomitant]
  3. FLUOXETINE CAP [Concomitant]
  4. LIALDA [Concomitant]
  5. ONDANSETRON TAB [Concomitant]
  6. PREDNISONE [Concomitant]
     Active Substance: PREDNISONE

REACTIONS (2)
  - Mental disorder [None]
  - Therapy interrupted [None]

NARRATIVE: CASE EVENT DATE: 20230201
